FAERS Safety Report 6013982-1 (Version None)
Quarter: 2008Q4

REPORT INFORMATION
  Report Type: 
  Country: None (occurrence: None)
  Receive Date: 20081216
  Receipt Date: 20080527
  Transmission Date: 20090506
  Serious: Yes (Hospitalization)
  Sender: FDA-Public Use
  Company Number: US-WYE-H04247608

PATIENT
  Age: 54 Year
  Sex: Female
  Weight: 72.64 kg

DRUGS (7)
  1. EFFEXOR XR [Suspect]
     Indication: DEPRESSION
     Dosage: 225 MG 1X PER 1 DAY, ORAL : 150 MG 1X PER 1 DAY, ORAL
     Route: 048
     Dates: start: 19980101, end: 20070101
  2. EFFEXOR XR [Suspect]
     Indication: DEPRESSION
     Dosage: 225 MG 1X PER 1 DAY, ORAL : 150 MG 1X PER 1 DAY, ORAL
     Route: 048
     Dates: start: 20070101
  3. PRILOSEC [Concomitant]
  4. ATENOLOL [Concomitant]
  5. KLONOPIN [Concomitant]
  6. PROMETHAZINE [Concomitant]
  7. MULTIVITAMINS (ASCORBIC ACID/ERGOCALCIFEROL/FOLIC ACID/NICOTINAMIDE/PA [Concomitant]

REACTIONS (16)
  - ACTIVITIES OF DAILY LIVING IMPAIRED [None]
  - ALCOHOL ABUSE [None]
  - ANXIETY [None]
  - CRYING [None]
  - DERMATILLOMANIA [None]
  - DIET REFUSAL [None]
  - DRUG EFFECT DECREASED [None]
  - DRUG WITHDRAWAL SYNDROME [None]
  - FATIGUE [None]
  - IMPAIRED SELF-CARE [None]
  - INFECTION [None]
  - INSOMNIA [None]
  - INTENTIONAL OVERDOSE [None]
  - LIBIDO DECREASED [None]
  - MOOD SWINGS [None]
  - SOCIAL AVOIDANT BEHAVIOUR [None]
